FAERS Safety Report 25727688 (Version 1)
Quarter: 2025Q3

REPORT INFORMATION
  Report Type: Spontaneous
  Country: EU (occurrence: EU)
  Receive Date: 20250826
  Receipt Date: 20250826
  Transmission Date: 20251021
  Serious: Yes (Hospitalization)
  Sender: ELI LILLY AND COMPANY
  Company Number: None

PATIENT
  Age: 23 Year
  Sex: Female
  Weight: 75.8 kg

DRUGS (6)
  1. MOUNJARO [Interacting]
     Active Substance: TIRZEPATIDE
     Indication: Weight control
     Dosage: 5 MG, WEEKLY (1/W)
     Route: 058
     Dates: start: 202505, end: 20250730
  2. TERALITHE [Interacting]
     Active Substance: LITHIUM CARBONATE
     Indication: Bipolar disorder
     Dosage: 1400 MG, DAILY
     Route: 048
     Dates: start: 20230206, end: 20250731
  3. QUVIVIQ [Concomitant]
     Active Substance: DARIDOREXANT
     Indication: Insomnia
     Dosage: 25 MG, DAILY
     Route: 048
     Dates: start: 202507, end: 20250731
  4. LAMOTRIGINE [Concomitant]
     Active Substance: LAMOTRIGINE
     Indication: Bipolar disorder
     Dosage: 200 MG, DAILY
     Route: 048
     Dates: start: 202309
  5. PREGABALIN [Concomitant]
     Active Substance: PREGABALIN
     Indication: Bipolar disorder
     Dosage: 200 MG, BID
     Route: 048
  6. XANAX [Concomitant]
     Active Substance: ALPRAZOLAM
     Indication: Anxiety
     Route: 048
     Dates: start: 2023

REACTIONS (8)
  - Antipsychotic drug level above therapeutic [Recovered/Resolved]
  - Cerebellar syndrome [Recovered/Resolved]
  - Tremor [Recovered/Resolved]
  - Diplopia [Recovered/Resolved]
  - Hypercalcaemia [Recovered/Resolved]
  - Nausea [Recovered/Resolved]
  - Acute kidney injury [Recovered/Resolved]
  - Drug interaction [Unknown]

NARRATIVE: CASE EVENT DATE: 20250701
